FAERS Safety Report 9515916 (Version 2)
Quarter: 2013Q4

REPORT INFORMATION
  Report Type: Report from Study
  Country: CA (occurrence: CA)
  Receive Date: 20130911
  Receipt Date: 20131018
  Transmission Date: 20140711
  Serious: Yes (Life-Threatening, Hospitalization)
  Sender: FDA-Public Use
  Company Number: CA-JNJFOC-20130902832

PATIENT
  Age: 49 Year
  Sex: Female
  Weight: 78.3 kg

DRUGS (4)
  1. REMICADE [Suspect]
     Indication: CROHN^S DISEASE
     Route: 042
     Dates: start: 20100123
  2. IMURAN [Concomitant]
     Route: 065
  3. ZANTAC [Concomitant]
     Route: 065
  4. CYMBALTA [Concomitant]
     Route: 065

REACTIONS (1)
  - Myocardial infarction [Recovered/Resolved]
